FAERS Safety Report 10420860 (Version 1)
Quarter: 2014Q3

REPORT INFORMATION
  Report Type: Spontaneous
  Country: US (occurrence: None)
  Receive Date: 20140829
  Receipt Date: 20140829
  Transmission Date: 20150326
  Serious: Yes (Hospitalization)
  Sender: FDA-Public Use
  Company Number: None

PATIENT
  Age: 47 Year
  Sex: Male
  Weight: 69 kg

DRUGS (5)
  1. 5-FU [Suspect]
     Active Substance: FLUOROURACIL
  2. OXALIPLATIN. [Suspect]
     Active Substance: OXALIPLATIN
  3. EVEROLIMUS [Suspect]
     Active Substance: EVEROLIMUS
  4. AVASTIN [Suspect]
     Active Substance: BEVACIZUMAB
  5. FOLINIC ACID [Suspect]
     Active Substance: LEUCOVORIN

REACTIONS (9)
  - Vomiting [None]
  - Drug dose omission [None]
  - Colon cancer stage IV [None]
  - Malignant neoplasm progression [None]
  - Treatment noncompliance [None]
  - Proteinuria [None]
  - Abdominal pain [None]
  - Nausea [None]
  - Neuropathy peripheral [None]

NARRATIVE: CASE EVENT DATE: 20140828
